FAERS Safety Report 4945307-4 (Version None)
Quarter: 2006Q1

REPORT INFORMATION
  Report Type: 
  Country: None (occurrence: None)
  Receive Date: 20060315
  Receipt Date: 20060315
  Transmission Date: 20060701
  Serious: Yes (Other)
  Sender: FDA-Public Use
  Company Number: None

PATIENT
  Sex: Female
  Weight: 67.1324 kg

DRUGS (3)
  1. EPINEPHRINE [Suspect]
     Indication: VASOCONSTRICTION
     Dosage: INTRAOCULAR [USED DRING CASE]
     Route: 031
  2. BSS [Suspect]
     Indication: EYE IRRIGATION
     Dosage: INTRAOCULAR [USED DRING CASE]
     Route: 031
  3. STERIS AUTOCLAVE [Concomitant]

REACTIONS (1)
  - ANTERIOR CHAMBER DISORDER [None]
